FAERS Safety Report 23291476 (Version 1)
Quarter: 2023Q4

REPORT INFORMATION
  Report Type: Spontaneous
  Country: US (occurrence: US)
  Receive Date: 20231213
  Receipt Date: 20231213
  Transmission Date: 20240109
  Serious: No
  Sender: FDA-Public Use
  Company Number: US-Ipsen Biopharmaceuticals, Inc.-2023-27484

PATIENT
  Age: 45 Year
  Sex: Male
  Weight: 75 kg

DRUGS (2)
  1. DYSPORT [Suspect]
     Active Substance: ABOBOTULINUMTOXINA
     Indication: Skin wrinkling
     Dosage: GLABELLAR LINES 10 UNITS INTO 5 INJECTIONS POINTS EACH AND CANTHAL LINES 10 UNITS INTO 6 INJECTIONS
     Route: 030
     Dates: start: 20231018, end: 20231018
  2. DYSPORT [Suspect]
     Active Substance: ABOBOTULINUMTOXINA
     Indication: Skin wrinkling
     Route: 030
     Dates: start: 20231115, end: 20231115

REACTIONS (2)
  - Drug ineffective [Unknown]
  - Off label use [Unknown]

NARRATIVE: CASE EVENT DATE: 20231115
